FAERS Safety Report 16412534 (Version 2)
Quarter: 2019Q3

REPORT INFORMATION
  Report Type: Report from Study
  Country: CA (occurrence: CA)
  Receive Date: 20190610
  Receipt Date: 20190827
  Transmission Date: 20191004
  Serious: Yes (Other)
  Sender: FDA-Public Use
  Company Number: CA-HLSUS-2019-CA-000615

PATIENT
  Sex: Male

DRUGS (7)
  1. CLOZARIL [Suspect]
     Active Substance: CLOZAPINE
     Route: 048
     Dates: start: 20170924
  2. BENZTROPINE. [Concomitant]
     Active Substance: BENZTROPINE
  3. LORAZEPAM. [Concomitant]
     Active Substance: LORAZEPAM
  4. BISOPROLOL [Concomitant]
     Active Substance: BISOPROLOL
  5. ASA [Concomitant]
     Active Substance: ASPIRIN
  6. LACTULOSE. [Concomitant]
     Active Substance: LACTULOSE
  7. ENOXAPARIN [Concomitant]
     Active Substance: ENOXAPARIN

REACTIONS (1)
  - Hypertrophic cardiomyopathy [Unknown]
